FAERS Safety Report 14151504 (Version 1)
Quarter: 2017Q4

REPORT INFORMATION
  Report Type: Spontaneous
  Country: US (occurrence: None)
  Receive Date: 20171101
  Receipt Date: 20171101
  Transmission Date: 20180321
  Serious: Yes (Hospitalization)
  Sender: FDA-Public Use
  Company Number: None

PATIENT
  Age: 13 Year
  Sex: Female

DRUGS (7)
  1. TOBRAMYCIN. [Concomitant]
     Active Substance: TOBRAMYCIN
  2. PULMOZYME [Suspect]
     Active Substance: DORNASE ALFA
     Indication: CYSTIC FIBROSIS
     Dosage: DOSE - 2.5MG/2.5ML?ROUTE - ORAL NEBULIZER
     Route: 048
     Dates: start: 20131104
  3. DOXYCYCLINE. [Concomitant]
     Active Substance: DOXYCYCLINE
  4. VENTOLIN [Concomitant]
     Active Substance: ALBUTEROL SULFATE
  5. ONE TOUCH UNITS [Concomitant]
  6. ONE TOUCH TEST STRIP [Concomitant]
  7. ORKAMBI [Concomitant]
     Active Substance: IVACAFTOR\LUMACAFTOR

REACTIONS (1)
  - Condition aggravated [None]

NARRATIVE: CASE EVENT DATE: 20171031
